FAERS Safety Report 23569043 (Version 2)
Quarter: 2024Q2

REPORT INFORMATION
  Report Type: Report from Study
  Country: US (occurrence: US)
  Receive Date: 20240227
  Receipt Date: 20240402
  Transmission Date: 20240716
  Serious: Yes (Death, Hospitalization)
  Sender: FDA-Public Use
  Company Number: US-AMNEAL PHARMACEUTICALS-2024-AMRX-00644

PATIENT
  Age: 69 Year
  Sex: Female

DRUGS (1)
  1. ONGENTYS [Suspect]
     Active Substance: OPICAPONE
     Indication: Product used for unknown indication
     Dosage: 1 CAPSULES, BEDTIME (TAKE 1 CAPSULE BY MOUTH EVERY NIGHT AT BEDTIME ON AN EMPTY STOMACH)
     Route: 048

REACTIONS (2)
  - Death [Fatal]
  - Oesophageal haemorrhage [Unknown]

NARRATIVE: CASE EVENT DATE: 20240319
